FAERS Safety Report 4886979-2 (Version None)
Quarter: 2006Q1

REPORT INFORMATION
  Report Type: 
  Country: None (occurrence: None)
  Receive Date: 20060120
  Receipt Date: 20050620
  Transmission Date: 20060701
  Serious: Yes (Death)
  Sender: FDA-Public Use
  Company Number: US-MERCK-0506USA02947

PATIENT
  Age: 68 Year
  Sex: Male
  Weight: 75 kg

DRUGS (9)
  1. VIOXX [Suspect]
     Indication: MUSCULOSKELETAL PAIN
     Route: 048
  2. COUMADIN [Concomitant]
     Indication: CORONARY ARTERY SURGERY
     Route: 065
     Dates: start: 20000101
  3. HYZAAR [Concomitant]
     Indication: HYPERTENSION
     Route: 065
  4. LANOXIN [Concomitant]
     Route: 065
  5. NORVASC [Concomitant]
     Route: 065
  6. PROCHLORPERAZINE [Concomitant]
     Route: 065
  7. AMIODARONE [Concomitant]
     Route: 065
  8. HYDROCHLORIC ACID [Concomitant]
     Route: 065
  9. DIAZEPAM [Concomitant]
     Route: 065

REACTIONS (2)
  - DEATH [None]
  - RENAL DISORDER [None]
